FAERS Safety Report 15016422 (Version 5)
Quarter: 2018Q4

REPORT INFORMATION
  Report Type: Spontaneous
  Country: US (occurrence: US)
  Receive Date: 20180615
  Receipt Date: 20181226
  Transmission Date: 20190204
  Serious: No
  Sender: FDA-Public Use
  Company Number: US-PFIZER INC-2018241405

PATIENT
  Age: 71 Year
  Sex: Male
  Weight: 110.97 kg

DRUGS (7)
  1. SUTENT [Suspect]
     Active Substance: SUNITINIB MALATE
     Indication: PANCREATIC NEUROENDOCRINE TUMOUR
     Dosage: 28 MG, DAILY
     Route: 048
     Dates: start: 201805
  2. OCTREOTIDE. [Concomitant]
     Active Substance: OCTREOTIDE
     Indication: PANCREATIC NEUROENDOCRINE TUMOUR
     Dosage: UNK UNK, MONTHLY
     Dates: start: 2018
  3. SUTENT [Suspect]
     Active Substance: SUNITINIB MALATE
     Dosage: 37 MG, UNK
  4. SUTENT [Suspect]
     Active Substance: SUNITINIB MALATE
     Dosage: UNK (TOOK A LOWER DOSE)
     Dates: start: 201806, end: 2018
  5. SUTENT [Suspect]
     Active Substance: SUNITINIB MALATE
     Dosage: 37.5 MG, 1X/DAY
     Route: 048
     Dates: start: 201806
  6. SUTENT [Suspect]
     Active Substance: SUNITINIB MALATE
     Dosage: 37.5 MG, DAILY
     Route: 048
     Dates: start: 201806, end: 20181213
  7. SUTENT [Suspect]
     Active Substance: SUNITINIB MALATE
     Dosage: UNK (UPPED HIS DOSE)
     Dates: start: 201807

REACTIONS (9)
  - Diarrhoea [Not Recovered/Not Resolved]
  - Eructation [Unknown]
  - Neoplasm progression [Unknown]
  - Gastrointestinal disorder [Unknown]
  - Product storage error [Unknown]
  - Nausea [Unknown]
  - Decreased appetite [Unknown]
  - Poor quality product administered [Unknown]
  - Abdominal distension [Unknown]

NARRATIVE: CASE EVENT DATE: 201806
